FAERS Safety Report 9153472 (Version 1)
Quarter: 2013Q1

REPORT INFORMATION
  Report Type: Spontaneous
  Country: US (occurrence: None)
  Receive Date: 20130306
  Receipt Date: 20130306
  Transmission Date: 20140127
  Serious: No
  Sender: FDA-Public Use
  Company Number: None

PATIENT
  Age: 38 Year
  Sex: Female
  Weight: 101.15 kg

DRUGS (1)
  1. ARTH ARREST [Suspect]
     Indication: PAIN
     Dosage: ROLL ON 3-4 DAILY SQ?1X LESS THAN 3 MINUTES
     Dates: start: 20130303, end: 20130303

REACTIONS (5)
  - Application site pain [None]
  - Application site vesicles [None]
  - Skin exfoliation [None]
  - Application site erythema [None]
  - Application site swelling [None]
